FAERS Safety Report 8393745 (Version 7)
Quarter: 2013Q4

REPORT INFORMATION
  Report Type: Report from Study
  Country: CA (occurrence: CA)
  Receive Date: 20120207
  Receipt Date: 20131224
  Transmission Date: 20140711
  Serious: Yes (Hospitalization, Other)
  Sender: FDA-Public Use
  Company Number: CA-ROCHE-1033925

PATIENT
  Age: 64 Year
  Sex: Female
  Weight: 63.5 kg

DRUGS (44)
  1. RITUXAN [Suspect]
     Indication: SJOGREN^S SYNDROME
     Route: 042
     Dates: start: 20100209
  2. RITUXAN [Suspect]
     Indication: VASCULITIS
     Dosage: DAY 1 AND 15
     Route: 042
     Dates: start: 20110929
  3. RITUXAN [Suspect]
     Route: 042
     Dates: start: 20120503
  4. RITUXAN [Suspect]
     Route: 065
     Dates: start: 20121220
  5. RITUXAN [Suspect]
     Route: 065
     Dates: start: 20130729
  6. ACIDOPHILUS [Concomitant]
  7. PREDNISONE [Concomitant]
     Indication: PREMEDICATION
     Route: 048
     Dates: start: 20111004, end: 20111004
  8. PREDNISONE [Concomitant]
     Indication: IMMUNOSUPPRESSION
     Route: 048
  9. PREDNISONE [Concomitant]
     Route: 048
     Dates: start: 20100209
  10. NORTRIPTYLINE [Concomitant]
     Indication: PAIN
     Route: 048
  11. HYDROMORPH CONTIN [Concomitant]
     Indication: PAIN
     Dosage: 1-2 MG
     Route: 065
  12. MELATONIN [Concomitant]
  13. LYRICA [Concomitant]
     Indication: PAIN
  14. BACLOFEN [Concomitant]
  15. LORAZEPAM [Concomitant]
  16. RANITIDINE [Concomitant]
  17. POTASSIUM CHLORIDE [Concomitant]
     Route: 048
  18. LASIX [Concomitant]
  19. DIPHENHYDRAMINE HCL [Concomitant]
     Indication: PREMEDICATION
     Route: 065
     Dates: start: 20100209
  20. DIPHENHYDRAMINE HCL [Concomitant]
     Dosage: ONCE
     Route: 048
     Dates: start: 20111004, end: 20111004
  21. ACETAMINOFEN [Concomitant]
     Indication: PREMEDICATION
     Route: 048
     Dates: start: 20100209, end: 20100224
  22. ACETAMINOFEN [Concomitant]
     Dosage: ONCE
     Route: 065
     Dates: start: 20111004, end: 20111004
  23. ACETAMINOFEN [Concomitant]
     Route: 048
     Dates: start: 20101020
  24. ALENDRONATE [Concomitant]
     Route: 048
  25. OMEGA 3 [Concomitant]
  26. FOLIC ACID [Concomitant]
     Route: 048
  27. NASONEX [Concomitant]
  28. VITAMIN C [Concomitant]
  29. PREGABALIN [Concomitant]
     Indication: PAIN
     Route: 048
  30. PREGABALIN [Concomitant]
     Route: 048
  31. METHADONE [Concomitant]
     Indication: PAIN
     Route: 048
  32. METHOTREXATE [Concomitant]
     Indication: IMMUNOSUPPRESSION
     Route: 030
  33. WARFARIN [Concomitant]
     Route: 048
  34. AMLODIPIN [Concomitant]
     Route: 048
  35. NEXIUM [Concomitant]
     Route: 048
  36. TIZANIDINE [Concomitant]
     Indication: HYPOTONIA
     Route: 048
  37. CLONAZEPAM [Concomitant]
     Route: 048
  38. FERROUS FUMARATE [Concomitant]
     Route: 048
  39. FUROSEMIDE [Concomitant]
     Route: 048
  40. TYLENOL [Concomitant]
     Indication: ARTHRITIS
  41. TYLENOL [Concomitant]
     Indication: MYALGIA
  42. DESLORATADINE [Concomitant]
  43. SENNOSIDE [Concomitant]
  44. DOCUSATE SODIUM [Concomitant]

REACTIONS (11)
  - Pneumonia aspiration [Recovered/Resolved]
  - Pneumonia [Recovered/Resolved]
  - Hip arthroplasty [Recovered/Resolved]
  - Bronchitis [Unknown]
  - Cystitis haemorrhagic [Recovered/Resolved]
  - Cystitis [Unknown]
  - Urinary bladder haemorrhage [Recovered/Resolved]
  - Hernia hiatus repair [Recovered/Resolved]
  - Intestinal prolapse [Unknown]
  - Bladder prolapse [Not Recovered/Not Resolved]
  - Urinary tract infection [Unknown]
